FAERS Safety Report 8816674 (Version 2)
Quarter: 2012Q4

REPORT INFORMATION
  Report Type: Spontaneous
  Country: US (occurrence: None)
  Receive Date: 20120928
  Receipt Date: 20121005
  Transmission Date: 20130627
  Serious: Yes (Hospitalization)
  Sender: FDA-Public Use
  Company Number: DSA_59807_2012

PATIENT
  Age: 60 Year
  Sex: Male

DRUGS (1)
  1. DILTIAZEM HYDROCHLORIDE [Suspect]
     Indication: SUICIDE ATTEMPT

REACTIONS (6)
  - Suicide attempt [None]
  - Abdominal distension [None]
  - Intestinal ischaemia [None]
  - Overdose [None]
  - Hypotension [None]
  - Bradycardia [None]
